FAERS Safety Report 24591815 (Version 1)
Quarter: 2024Q4

REPORT INFORMATION
  Report Type: Spontaneous
  Country: DE (occurrence: DE)
  Receive Date: 20241108
  Receipt Date: 20241108
  Transmission Date: 20250114
  Serious: Yes (Hospitalization, Other)
  Sender: FOOD AND DRUG ADMINISTRATION
  Company Number: DE-ZAMBON-202402817DEU

PATIENT
  Age: 71 Year
  Sex: Male

DRUGS (6)
  1. XADAGO [Suspect]
     Active Substance: SAFINAMIDE MESYLATE
     Indication: Parkinson^s disease
     Route: 048
     Dates: start: 20240603, end: 20241006
  2. CARBIDOPA\ENTACAPONE\LEVODOPA [Concomitant]
     Active Substance: CARBIDOPA\ENTACAPONE\LEVODOPA
     Indication: Parkinson^s disease
     Dosage: NOT PROVIDED
     Route: 048
     Dates: start: 1999
  3. Amantadine-Neuraxpharm [Concomitant]
     Indication: Parkinson^s disease
     Dosage: 100 MG SINCE MANY YEARS
     Route: 048
     Dates: start: 1999
  4. LATANOPROST [Concomitant]
     Active Substance: LATANOPROST
     Indication: Product used for unknown indication
     Dosage: 50 ?G/ML
     Route: 061
  5. ASPIRIN [Concomitant]
     Active Substance: ASPIRIN
     Indication: Product used for unknown indication
     Dosage: 100 MG
     Route: 048
  6. Prostagutt duo [Concomitant]
     Indication: Product used for unknown indication
     Dosage: NOT PROVIDED
     Route: 048

REACTIONS (5)
  - Partial seizures [Unknown]
  - Speech disorder [Unknown]
  - Memory impairment [Unknown]
  - Vision blurred [Unknown]
  - Visual field defect [Unknown]

NARRATIVE: CASE EVENT DATE: 20241006
